FAERS Safety Report 11209741 (Version 1)
Quarter: 2015Q2

REPORT INFORMATION
  Report Type: Spontaneous
  Country: ES (occurrence: ES)
  Receive Date: 20150622
  Receipt Date: 20150622
  Transmission Date: 20150821
  Serious: Yes (Death, Hospitalization)
  Sender: FDA-Public Use
  Company Number: ES-INTERMUNE, INC.-201506IM017934

PATIENT
  Age: 75 Year
  Sex: Male
  Weight: 58 kg

DRUGS (14)
  1. PANTOPRAZOLE [Concomitant]
     Active Substance: PANTOPRAZOLE SODIUM
  2. SERTRALINE [Suspect]
     Active Substance: SERTRALINE HYDROCHLORIDE
  3. ALLOPURINOL. [Concomitant]
     Active Substance: ALLOPURINOL
  4. EMCONCOR [Concomitant]
     Active Substance: BISOPROLOL FUMARATE
  5. ZOLPIDEM [Concomitant]
     Active Substance: ZOLPIDEM\ZOLPIDEM TARTRATE
  6. OXYGEN. [Concomitant]
     Active Substance: OXYGEN
  7. SPIRIVA [Concomitant]
     Active Substance: TIOTROPIUM BROMIDE MONOHYDRATE
  8. TIAPRIZAL [Concomitant]
     Active Substance: TIAPRIDE HYDROCHLORIDE
  9. OXYGEN. [Concomitant]
     Active Substance: OXYGEN
     Dates: start: 201412
  10. PLAVIX [Concomitant]
     Active Substance: CLOPIDOGREL BISULFATE
  11. ESBRIET [Suspect]
     Active Substance: PIRFENIDONE
     Indication: IDIOPATHIC PULMONARY FIBROSIS
     Dosage: 1602 MG
     Route: 048
     Dates: start: 20141120
  12. PULMICORT TURBUHALER [Concomitant]
     Active Substance: BUDESONIDE
  13. LIVAZO [Concomitant]
     Active Substance: PITAVASTATIN CALCIUM
  14. UNIKET [Concomitant]
     Active Substance: ISOSORBIDE MONONITRATE

REACTIONS (9)
  - Polyuria [Unknown]
  - Decreased appetite [Unknown]
  - Post-anoxic myoclonus [Fatal]
  - Photopsia [Unknown]
  - Insomnia [Unknown]
  - Paraesthesia [Unknown]
  - Urinary hesitation [Unknown]
  - Headache [Unknown]
  - Nausea [Unknown]

NARRATIVE: CASE EVENT DATE: 20141212
